FAERS Safety Report 17817849 (Version 1)
Quarter: 2020Q2

REPORT INFORMATION
  Report Type: Spontaneous
  Country: SK (occurrence: SK)
  Receive Date: 20200522
  Receipt Date: 20200522
  Transmission Date: 20200714
  Serious: Yes (Hospitalization)
  Sender: FDA-Public Use
  Company Number: SK-MYLANLABS-2020M1050072

PATIENT
  Age: 31 Year
  Sex: Male

DRUGS (4)
  1. PERINDOPRIL [Suspect]
     Active Substance: PERINDOPRIL
     Indication: SINUS TACHYCARDIA
     Dosage: UNK
  2. FUROSEMIDE. [Suspect]
     Active Substance: FUROSEMIDE
     Indication: SINUS TACHYCARDIA
     Dosage: UNK
  3. BISOPROLOL [Suspect]
     Active Substance: BISOPROLOL
     Indication: SINUS TACHYCARDIA
     Dosage: UNK
  4. EPLERENONE. [Suspect]
     Active Substance: EPLERENONE
     Indication: SINUS TACHYCARDIA
     Dosage: UNK

REACTIONS (2)
  - Renal function test abnormal [Recovering/Resolving]
  - Hypotension [Recovering/Resolving]
